FAERS Safety Report 8306388-3 (Version None)
Quarter: 2012Q2

REPORT INFORMATION
  Report Type: 
  Country: None (occurrence: None)
  Receive Date: 20120423
  Receipt Date: 20120419
  Transmission Date: 20120825
  Serious: Yes (Other)
  Sender: FDA-Public Use
  Company Number: GB-ABBOTT-11P-167-0882232-00

PATIENT

DRUGS (6)
  1. HUMIRA [Suspect]
     Indication: CROHN'S DISEASE
     Route: 058
     Dates: start: 20110615, end: 20111201
  2. FOLIC ACID [Concomitant]
     Indication: BLOOD FOLATE DECREASED
     Dates: start: 20080101
  3. ANTIHISTAMINE(UNSPECIFIED) [Concomitant]
     Indication: SEASONAL ALLERGY
     Dates: start: 20050101
  4. PENTASA [Concomitant]
     Indication: CROHN'S DISEASE
     Dates: start: 20080101
  5. OMEPRAZOLE [Concomitant]
     Indication: GASTROOESOPHAGEAL REFLUX DISEASE
     Dates: start: 20080101
  6. ORAL CONTRACEPTIVE NOS [Suspect]
     Indication: CONTRACEPTION
     Dates: end: 20111201

REACTIONS (1)
  - BLOOD PRESSURE INCREASED [None]
